FAERS Safety Report 9171211 (Version 1)
Quarter: 2013Q1

REPORT INFORMATION
  Report Type: Spontaneous
  Country: DE (occurrence: None)
  Receive Date: 20130308
  Receipt Date: 20130308
  Transmission Date: 20140127
  Serious: Yes (Congenital Anomaly)
  Sender: FDA-Public Use
  Company Number: DSM-2013-00278

PATIENT
  Sex: Male

DRUGS (1)
  1. OLMESARTAN MEDOXOMIL [Suspect]
     Indication: FOETAL EXPOSURE DURING PREGNANCY
     Dosage: 30. PEGNANCY WEEK - 36+3 PREGNANCY WEEK
     Route: 015

REACTIONS (6)
  - Maternal drugs affecting foetus [None]
  - Premature baby [None]
  - Kidney malformation [None]
  - Renal impairment [None]
  - Foetal malformation [None]
  - Neonatal hypotension [None]
